FAERS Safety Report 7939667-X (Version None)
Quarter: 2011Q4

REPORT INFORMATION
  Report Type: 
  Country: None (occurrence: None)
  Receive Date: 20111125
  Receipt Date: 20111116
  Transmission Date: 20120403
  Serious: Yes (Other)
  Sender: FDA-Public Use
  Company Number: PHEH2008US02539

PATIENT
  Sex: Male

DRUGS (10)
  1. DEXAMETHASONE [Concomitant]
  2. ADRIAMYCIN PFS [Concomitant]
  3. DIGOXIN [Concomitant]
  4. AREDIA [Suspect]
     Dosage: 90 MG,
  5. VINCRISTINE [Concomitant]
  6. LASIX [Concomitant]
  7. ZOMETA [Suspect]
  8. AMOXICILLIN [Concomitant]
  9. CHEMOTHERAPEUTICS [Concomitant]
  10. LISINOPRIL [Concomitant]

REACTIONS (38)
  - INFECTION [None]
  - TOOTH LOSS [None]
  - OSTEOPOROSIS [None]
  - OSTEOPENIA [None]
  - CARDIAC MURMUR [None]
  - BUNDLE BRANCH BLOCK RIGHT [None]
  - DECREASED APPETITE [None]
  - FATIGUE [None]
  - SCAR [None]
  - DYSPNOEA [None]
  - OEDEMA PERIPHERAL [None]
  - HYPOACUSIS [None]
  - MYOCARDIAL INFARCTION [None]
  - DISCOMFORT [None]
  - DENTAL CARIES [None]
  - ASPERGILLOSIS [None]
  - TRICUSPID VALVE INCOMPETENCE [None]
  - DILATATION VENTRICULAR [None]
  - MITRAL VALVE INCOMPETENCE [None]
  - MUSCULAR WEAKNESS [None]
  - GENERAL PHYSICAL HEALTH DETERIORATION [None]
  - MASTICATION DISORDER [None]
  - LEFT VENTRICULAR DYSFUNCTION [None]
  - CARDIOMYOPATHY [None]
  - TOOTH DISORDER [None]
  - CARDIAC FAILURE CONGESTIVE [None]
  - RENAL FAILURE CHRONIC [None]
  - WEIGHT DECREASED [None]
  - GINGIVAL RECESSION [None]
  - RENAL FAILURE [None]
  - OSTEONECROSIS OF JAW [None]
  - PAIN [None]
  - ANXIETY [None]
  - PULMONARY HYPERTENSION [None]
  - AORTIC VALVE INCOMPETENCE [None]
  - VENTRICULAR EXTRASYSTOLES [None]
  - CHRONIC OBSTRUCTIVE PULMONARY DISEASE [None]
  - SINUS TACHYCARDIA [None]
